FAERS Safety Report 14879988 (Version 1)
Quarter: 2018Q2

REPORT INFORMATION
  Report Type: Spontaneous
  Country: US (occurrence: US)
  Receive Date: 20180511
  Receipt Date: 20180511
  Transmission Date: 20180711
  Serious: Yes (Hospitalization)
  Sender: FDA-Public Use
  Company Number: US-JNJFOC-20180504446

PATIENT
  Age: 61 Year
  Sex: Female
  Weight: 90.72 kg

DRUGS (2)
  1. ADVIL [Suspect]
     Active Substance: IBUPROFEN
     Indication: PAIN
     Route: 065
     Dates: start: 201804
  2. SIMPONI [Suspect]
     Active Substance: GOLIMUMAB
     Indication: RHEUMATOID ARTHRITIS
     Route: 058
     Dates: start: 201802, end: 201802

REACTIONS (6)
  - Pneumonia [Unknown]
  - Abdominal pain upper [Recovered/Resolved]
  - Nausea [Recovered/Resolved]
  - Rheumatoid arthritis [Unknown]
  - Ulcer [Unknown]
  - Sepsis [Unknown]

NARRATIVE: CASE EVENT DATE: 201802
